FAERS Safety Report 9452765 (Version 1)
Quarter: 2013Q3

REPORT INFORMATION
  Report Type: Spontaneous
  Country: US (occurrence: None)
  Receive Date: 20130807
  Receipt Date: 20130807
  Transmission Date: 20140515
  Serious: No
  Sender: FDA-Public Use
  Company Number: FK201302902

PATIENT
  Age: 31 Year
  Sex: Male
  Weight: 168.5 kg

DRUGS (9)
  1. VANCOMYCIN [Suspect]
     Indication: EVIDENCE BASED TREATMENT
     Dosage: 2 GM, EVERY 6 HOURS, INTRAVENOUS
     Route: 042
  2. METFORMIN (METFORMIN) [Concomitant]
  3. NOVOLIN 70/30 (HUMAN MIXTARD [Concomitant]
  4. CEFEPIME (CEFEPIME) [Concomitant]
  5. METRONIDAZOLE (METRONIDAZOLE) [Concomitant]
  6. PIPERACILLIN/TAZOBACTAM (PIPERACILLIN W/TAZOBACTAM) [Concomitant]
  7. LISINOPRIL (LISINOPRIL) [Concomitant]
  8. AMOXICILLIN-CLAVULANIC ACID (SPEKTRAMOX) [Concomitant]
  9. CIPROFLOXACIN (CIPROFLOXACIN) [Concomitant]

REACTIONS (2)
  - Renal tubular necrosis [None]
  - Nephropathy toxic [None]
